FAERS Safety Report 5677837-4 (Version None)
Quarter: 2008Q1

REPORT INFORMATION
  Report Type: 
  Country: None (occurrence: None)
  Receive Date: 20080317
  Receipt Date: 20080229
  Transmission Date: 20080703
  Serious: Yes (Hospitalization, Other)
  Sender: FDA-Public Use
  Company Number: THYM-11188

PATIENT
  Age: 62 Year
  Sex: Male
  Weight: 75 kg

DRUGS (15)
  1. THYMOGLOBULIN [Suspect]
     Indication: LIVER TRANSPLANT
     Dosage: 105 MG, ONCE, INTRAVENOUS; 52.5 MG, QD, INTRAVENOUS; 57 MG, QD, INTRAVENOUS
     Route: 042
     Dates: start: 20061103, end: 20061103
  2. THYMOGLOBULIN [Suspect]
     Indication: LIVER TRANSPLANT
     Dosage: 105 MG, ONCE, INTRAVENOUS; 52.5 MG, QD, INTRAVENOUS; 57 MG, QD, INTRAVENOUS
     Route: 042
     Dates: start: 20061104, end: 20061106
  3. THYMOGLOBULIN [Suspect]
     Indication: LIVER TRANSPLANT
     Dosage: 105 MG, ONCE, INTRAVENOUS; 52.5 MG, QD, INTRAVENOUS; 57 MG, QD, INTRAVENOUS
     Route: 042
     Dates: start: 20061107, end: 20061109
  4. TACROLIMUS [Concomitant]
  5. MYCOPHENOLATE MOFETIL [Concomitant]
  6. BACTRIM DS [Concomitant]
  7. VALCYTE [Concomitant]
  8. DIFLUCAN [Concomitant]
  9. ACTIGALL [Concomitant]
  10. MG-PLUS [Concomitant]
  11. LASIX [Concomitant]
  12. MULTIVITAMIN [Concomitant]
  13. PREVACID [Concomitant]
  14. VICODIN [Concomitant]
  15. DIOCTYL SODIUM SULFOSUCCINATE (DOCUSATE SODIUM) [Concomitant]

REACTIONS (8)
  - ASTHENIA [None]
  - DECREASED APPETITE [None]
  - EARLY SATIETY [None]
  - MALAISE [None]
  - PAIN [None]
  - PULMONARY TUBERCULOSIS [None]
  - RENAL FAILURE ACUTE [None]
  - THERAPEUTIC AGENT TOXICITY [None]
